FAERS Safety Report 6912568-1 (Version None)
Quarter: 2010Q3

REPORT INFORMATION
  Report Type: 
  Country: None (occurrence: None)
  Receive Date: 20100806
  Receipt Date: 20080717
  Transmission Date: 20110219
  Serious: No
  Sender: FDA-Public Use
  Company Number: US-PFIZER INC-2008059779

PATIENT
  Sex: Female
  Weight: 67.7 kg

DRUGS (4)
  1. DETROL LA [Suspect]
     Indication: HYPERTONIC BLADDER
     Route: 048
     Dates: start: 20080701
  2. LISINOPRIL [Concomitant]
     Indication: HYPERTENSION
  3. CALAN [Concomitant]
     Indication: HYPERTENSION
  4. INSULIN [Concomitant]
     Indication: DIABETES MELLITUS

REACTIONS (1)
  - DRY MOUTH [None]
